FAERS Safety Report 12059578 (Version 1)
Quarter: 2016Q1

REPORT INFORMATION
  Report Type: Spontaneous
  Country: US (occurrence: None)
  Receive Date: 20160209
  Receipt Date: 20160209
  Transmission Date: 20160526
  Serious: No
  Sender: FDA-Public Use
  Company Number: None

PATIENT
  Age: 51 Year
  Sex: Female

DRUGS (7)
  1. CALCIUM [Concomitant]
     Active Substance: CALCIUM
  2. LEVOFLOXACINE [Concomitant]
     Active Substance: LEVOFLOXACIN
  3. GLATOPA [Suspect]
     Active Substance: GLATIRAMER ACETATE
     Indication: MULTIPLE SCLEROSIS
     Route: 058
     Dates: start: 20150930
  4. LORSARTAN 50MG [Concomitant]
     Active Substance: LOSARTAN
  5. NORETHINDRONE. [Concomitant]
     Active Substance: NORETHINDRONE
  6. VITAMIN D3 [Concomitant]
     Active Substance: CHOLECALCIFEROL
  7. PANTOPRAZOLE [Concomitant]
     Active Substance: PANTOPRAZOLE SODIUM

REACTIONS (6)
  - Nausea [None]
  - Chest discomfort [None]
  - Swelling face [None]
  - Tremor [None]
  - Diarrhoea [None]
  - Chills [None]

NARRATIVE: CASE EVENT DATE: 20160205
